FAERS Safety Report 24381013 (Version 1)
Quarter: 2024Q3

REPORT INFORMATION
  Report Type: Spontaneous
  Country: US (occurrence: US)
  Receive Date: 20240930
  Receipt Date: 20240930
  Transmission Date: 20241017
  Serious: No
  Sender: BAUSCH AND LOMB
  Company Number: US-BAUSCHBL-2024BNL033916

PATIENT
  Age: 70 Year
  Sex: Male

DRUGS (2)
  1. ALAWAY [Suspect]
     Active Substance: KETOTIFEN FUMARATE
     Indication: Eye pruritus
     Dosage: , 1 DROP INTO EACH EYE ONCE, DID NOT USE THE PRODUCT BEYOND THIS FIRST DOSE
     Route: 047
     Dates: start: 2024, end: 2024
  2. ADVANCED EYE RELIEF DRY EYE REJUVENATION [Suspect]
     Active Substance: GLYCERIN\PROPYLENE GLYCOL
     Indication: Dry eye
     Dosage: AS NEEDED, FOR YEARS, 1 DROP INTO ?EACH EYE AS NEEDED
     Route: 047
     Dates: end: 2024

REACTIONS (3)
  - Eye irritation [Unknown]
  - Eye pain [Unknown]
  - Eye pruritus [Unknown]

NARRATIVE: CASE EVENT DATE: 20240101
